FAERS Safety Report 5463797-8 (Version None)
Quarter: 2007Q3

REPORT INFORMATION
  Report Type: 
  Country: None (occurrence: None)
  Receive Date: 20070919
  Receipt Date: 20070912
  Transmission Date: 20080115
  Serious: Yes (Death, Other)
  Sender: FDA-Public Use
  Company Number: TPA2007A01170

PATIENT
  Age: 79 Year
  Sex: Male

DRUGS (15)
  1. ACTOS [Suspect]
     Indication: DIABETES MELLITUS
     Dosage: PER ORAL
     Route: 048
     Dates: start: 20060901, end: 20061231
  2. INSULIN (INSULIN) INJECTION [Concomitant]
  3. GLIPIZIDE ER (GLIPIZIDE) [Concomitant]
  4. FUROSEMIDE [Concomitant]
  5. LOTREL [Concomitant]
  6. NITRO-DUR [Concomitant]
  7. AZITHROMYCIN [Concomitant]
  8. NITROQUICK (GLYCERYL TRINITRATE) [Concomitant]
  9. CLOPIDOGREL BISU (CLOPIDOGREL SULFATE) [Concomitant]
  10. NOVOLIN R [Concomitant]
  11. LEXAPRO [Concomitant]
  12. LOVENOX [Concomitant]
  13. LONOX (ATOPRINE SULFATE, DIPHENOXYLATE HYDROCHLORIDE) [Concomitant]
  14. LANTUS [Concomitant]
  15. MORPHINE SULFATE [Concomitant]

REACTIONS (5)
  - CARDIAC FAILURE [None]
  - LUNG INFECTION [None]
  - OEDEMA PERIPHERAL [None]
  - POOR VENOUS ACCESS [None]
  - SWELLING [None]
